FAERS Safety Report 7456110-8 (Version None)
Quarter: 2011Q2

REPORT INFORMATION
  Report Type: 
  Country: None (occurrence: None)
  Receive Date: 20110503
  Receipt Date: 20110429
  Transmission Date: 20111010
  Serious: No
  Sender: FDA-Public Use
  Company Number: US-PFIZER INC-2011093026

PATIENT
  Sex: Male

DRUGS (1)
  1. GEODON [Suspect]
     Indication: SCHIZOPHRENIA
     Dosage: 160 MG, 1X/DAY
     Dates: start: 20010101

REACTIONS (4)
  - CHEST DISCOMFORT [None]
  - RASH [None]
  - STRESS [None]
  - HORMONE LEVEL ABNORMAL [None]
